FAERS Safety Report 17243240 (Version 1)
Quarter: 2020Q1

REPORT INFORMATION
  Report Type: Spontaneous
  Country: US (occurrence: US)
  Receive Date: 20200107
  Receipt Date: 20200107
  Transmission Date: 20200409
  Serious: No
  Sender: FDA-Public Use
  Company Number: US-EPIC PHARMA LLC-2019EPC00167

PATIENT
  Age: 34 Year
  Sex: Female
  Weight: 83.9 kg

DRUGS (4)
  1. DAILY MULTIVITAMIN [Concomitant]
     Active Substance: VITAMINS
  2. SERTRALINE [Concomitant]
     Active Substance: SERTRALINE HYDROCHLORIDE
  3. DOXYCYCLINE HYCLATE. [Suspect]
     Active Substance: DOXYCYCLINE HYCLATE
     Indication: SINUSITIS
     Dosage: 100 MG, 2X/DAY FOR 10 DAYS
     Route: 048
     Dates: start: 20190613
  4. DAILY PROBIOTIC [Concomitant]

REACTIONS (1)
  - Nausea [Recovered/Resolved]

NARRATIVE: CASE EVENT DATE: 20190613
